FAERS Safety Report 10552420 (Version 1)
Quarter: 2014Q4

REPORT INFORMATION
  Report Type: Spontaneous
  Country: CH (occurrence: CH)
  Receive Date: 20141029
  Receipt Date: 20141029
  Transmission Date: 20150529
  Serious: Yes (Other)
  Sender: FDA-Public Use
  Company Number: 2014SP003465

PATIENT
  Age: 56 Year
  Sex: Female

DRUGS (2)
  1. AKINETON [Concomitant]
     Active Substance: BIPERIDEN HYDROCHLORIDE
     Dates: start: 20140918
  2. LATUDA [Suspect]
     Active Substance: LURASIDONE HYDROCHLORIDE
     Indication: PRODUCT USED FOR UNKNOWN INDICATION
     Route: 048
     Dates: start: 20140918

REACTIONS (2)
  - Dysphagia [Not Recovered/Not Resolved]
  - Laryngospasm [Not Recovered/Not Resolved]

NARRATIVE: CASE EVENT DATE: 20140925
